FAERS Safety Report 9775511 (Version 1)
Quarter: 2013Q4

REPORT INFORMATION
  Report Type: Spontaneous
  Country: US (occurrence: None)
  Receive Date: 20131218
  Receipt Date: 20131218
  Transmission Date: 20140711
  Serious: Yes (Hospitalization)
  Sender: FDA-Public Use
  Company Number: 2017943

PATIENT
  Age: 80 Year
  Sex: Male
  Weight: 93.35 kg

DRUGS (2)
  1. LIDOCAINE HYDROCHLORIDE [Suspect]
     Indication: PREMEDICATION
     Dosage: UNKNOWN, 1X ONLY, UNK, SUBCUTANEOUS?
     Route: 058
     Dates: start: 20131107, end: 20131107
  2. MORPHINE [Concomitant]

REACTIONS (6)
  - Nausea [None]
  - Hyperhidrosis [None]
  - Bradycardia [None]
  - Hypotension [None]
  - Altered state of consciousness [None]
  - Depressed level of consciousness [None]
